FAERS Safety Report 7776327-2 (Version None)
Quarter: 2011Q3

REPORT INFORMATION
  Report Type: 
  Country: None (occurrence: None)
  Receive Date: 20110921
  Receipt Date: 20110921
  Transmission Date: 20111222
  Serious: No
  Sender: FDA-Public Use
  Company Number: None

PATIENT
  Age: 53 Year
  Sex: Male

DRUGS (2)
  1. XELODA [Suspect]
     Indication: OESOPHAGEAL CARCINOMA
     Dosage: 1000MG BID  X 21 DAYS
  2. XELODA [Suspect]
     Indication: OESOPHAGEAL CARCINOMA
     Dosage: 300MG BID  X 21 DAYS

REACTIONS (2)
  - DYSPHAGIA [None]
  - TEMPERATURE INTOLERANCE [None]
